FAERS Safety Report 4525157-3 (Version None)
Quarter: 2004Q4

REPORT INFORMATION
  Report Type: 
  Country: None (occurrence: None)
  Receive Date: 20041117
  Receipt Date: 20040129
  Transmission Date: 20050328
  Serious: Yes (Other)
  Sender: FDA-Public Use
  Company Number: 2004S1000285

PATIENT
  Sex: Male

DRUGS (4)
  1. CLOZAPINE [Suspect]
     Indication: SCHIZOPHRENIA, PARANOID TYPE
     Dosage: 200MG TID, ORAL
     Route: 048
  2. ARIPIRAZOLE [Concomitant]
  3. CHLORDIAZEPOXIDE HCL [Concomitant]
  4. NORTRIPTYLINE HCL [Concomitant]

REACTIONS (2)
  - ANAEMIA [None]
  - WEIGHT DECREASED [None]
